FAERS Safety Report 20899801 (Version 1)
Quarter: 2022Q2

REPORT INFORMATION
  Report Type: Spontaneous
  Country: US (occurrence: US)
  Receive Date: 20220601
  Receipt Date: 20220601
  Transmission Date: 20220721
  Serious: No
  Sender: FDA-Public Use
  Company Number: US-JNJFOC-20220545515

PATIENT

DRUGS (1)
  1. WOMENS ROGAINE [Suspect]
     Active Substance: MINOXIDIL
     Indication: Product used for unknown indication
     Dosage: FREQUENCY: DIFFICULT TO REMEMBER TO USE PRODUCT TWICE A DAY
     Route: 065

REACTIONS (1)
  - Inappropriate schedule of product administration [Unknown]
